FAERS Safety Report 23331417 (Version 3)
Quarter: 2024Q1

REPORT INFORMATION
  Report Type: Spontaneous
  Country: CA (occurrence: CA)
  Receive Date: 20231222
  Receipt Date: 20240214
  Transmission Date: 20240410
  Serious: Yes (Other)
  Sender: FDA-Public Use
  Company Number: CA-PFIZER INC-202300448974

PATIENT
  Age: 55 Year
  Sex: Male

DRUGS (2)
  1. ABRILADA [Suspect]
     Active Substance: ADALIMUMAB-AFZB
     Indication: Crohn^s disease
     Dosage: 40 MG, EVERY 2 WEEKS, WEEK 0 : 160MG, WEEK 2: 80MG, WEEK 4: 40MG EVERY 2 WEEKS AFTER, PREFILLED PEN
     Route: 058
     Dates: start: 20221011
  2. ASPIRIN [Concomitant]
     Active Substance: ASPIRIN
     Dosage: 1 DF, DOSAGE NOT AVAILABLE
     Route: 065

REACTIONS (1)
  - Incarcerated inguinal hernia [Recovering/Resolving]

NARRATIVE: CASE EVENT DATE: 20230101
